FAERS Safety Report 14948798 (Version 2)
Quarter: 2019Q3

REPORT INFORMATION
  Report Type: Spontaneous
  Country: US (occurrence: US)
  Receive Date: 20180529
  Receipt Date: 20190709
  Transmission Date: 20191004
  Serious: Yes (Death, Hospitalization, Other)
  Sender: FDA-Public Use
  Company Number: US-SHIRE-US201819372

PATIENT

DRUGS (8)
  1. PEGASPARGASE [Suspect]
     Active Substance: PEGASPARGASE
     Indication: ACUTE LYMPHOCYTIC LEUKAEMIA
     Dosage: 3750 IU, ON DAYS 2 AND 16
     Route: 065
  2. TN UNSPECIFIED [Concomitant]
     Indication: ACUTE LYMPHOCYTIC LEUKAEMIA
  3. TN UNSPECIFIED [Concomitant]
     Indication: ACUTE LYMPHOCYTIC LEUKAEMIA
     Dosage: 2 MG, ON DAYS 1, 8 AND 15
     Route: 042
  4. TN UNSPECIFIED [Concomitant]
     Indication: PROPHYLAXIS AGAINST GRAFT VERSUS HOST DISEASE
     Route: 065
  5. TN UNSPECIFIED [Concomitant]
     Indication: ACUTE LYMPHOCYTIC LEUKAEMIA
     Dosage: 200 MG/M2, ON DAYS 1 AND 15
     Route: 042
  6. URSODIOL. [Concomitant]
     Active Substance: URSODIOL
     Indication: PROPHYLAXIS
  7. PEGASPARGASE [Suspect]
     Active Substance: PEGASPARGASE
     Dosage: 2000 IU, UNK
     Route: 065
  8. TN UNSPECIFIED [Concomitant]
     Indication: ACUTE LYMPHOCYTIC LEUKAEMIA
     Dosage: 40 MG, ON DAYS 1-4 AND 15-18
     Route: 042

REACTIONS (6)
  - Multiple organ dysfunction syndrome [Fatal]
  - Hyperbilirubinaemia [Unknown]
  - Hepatic fibrosis [Unknown]
  - Ascites [Unknown]
  - Hepatic steatosis [Unknown]
  - Systemic candida [Fatal]

NARRATIVE: CASE EVENT DATE: 2018
